FAERS Safety Report 4325394-7 (Version None)
Quarter: 2004Q1

REPORT INFORMATION
  Report Type: 
  Country: None (occurrence: None)
  Receive Date: 20040324
  Receipt Date: 20040316
  Transmission Date: 20041129
  Serious: No
  Sender: FDA-Public Use
  Company Number: 04P-020-0251053-00

PATIENT
  Sex: Female
  Weight: 57 kg

DRUGS (2)
  1. MERIDIA [Suspect]
     Indication: WEIGHT CONTROL
     Dosage: 10 MG, 1 IN 1 D, ORAL
     Route: 048
  2. FLUOXETINE [Concomitant]

REACTIONS (6)
  - ANOREXIA [None]
  - BULIMIA NERVOSA [None]
  - GASTRITIS [None]
  - HAEMATEMESIS [None]
  - OESOPHAGITIS [None]
  - ULCER [None]
